FAERS Safety Report 19674580 (Version 3)
Quarter: 2021Q4

REPORT INFORMATION
  Report Type: Report from Study
  Country: US (occurrence: US)
  Receive Date: 20210809
  Receipt Date: 20211129
  Transmission Date: 20220303
  Serious: Yes (Hospitalization)
  Sender: FDA-Public Use
  Company Number: US-NOVOPROD-809060

PATIENT
  Age: 76 Year
  Sex: Male
  Weight: 97 kg

DRUGS (7)
  1. SEMAGLUTIDE [Suspect]
     Active Substance: SEMAGLUTIDE
     Dosage: UNK
     Dates: start: 20200923
  2. SEMAGLUTIDE [Suspect]
     Active Substance: SEMAGLUTIDE
     Dosage: UNK
     Dates: start: 20190604, end: 20200426
  3. SEMAGLUTIDE [Suspect]
     Active Substance: SEMAGLUTIDE
     Dosage: UNK
     Dates: start: 20200524, end: 20200716
  4. SEMAGLUTIDE [Suspect]
     Active Substance: SEMAGLUTIDE
     Indication: Obesity
     Dosage: 0.5 MG, QW
     Route: 058
     Dates: start: 20190604
  5. ATORVASTATIN [Concomitant]
     Active Substance: ATORVASTATIN
     Dosage: 20.0,MG,
     Dates: start: 2004
  6. CLOPIDOGREL [Concomitant]
     Active Substance: CLOPIDOGREL BISULFATE
     Dosage: 75.0,MG,
     Dates: start: 201812, end: 20200715
  7. METOPROLOL [Concomitant]
     Active Substance: METOPROLOL
     Dosage: 25.0,MG,
     Dates: start: 20200824

REACTIONS (2)
  - Bile duct stone [Recovered/Resolved]
  - Hyperplastic cholecystopathy [Not Recovered/Not Resolved]

NARRATIVE: CASE EVENT DATE: 20210420
